FAERS Safety Report 10152661 (Version 1)
Quarter: 2014Q2

REPORT INFORMATION
  Report Type: Spontaneous
  Country: US (occurrence: None)
  Receive Date: 20140502
  Receipt Date: 20140502
  Transmission Date: 20141212
  Serious: Yes (Hospitalization)
  Sender: FDA-Public Use
  Company Number: None

PATIENT
  Age: 61 Year
  Sex: Female
  Weight: 58.54 kg

DRUGS (2)
  1. CARBOPLATIN [Suspect]
     Dates: start: 20131031, end: 20131212
  2. GEMCITABINE HYDROCHLORIDE [Suspect]
     Dates: end: 20131212

REACTIONS (6)
  - Nausea [None]
  - Vomiting [None]
  - Small intestinal obstruction [None]
  - Neutropenia [None]
  - Hyponatraemia [None]
  - Dehydration [None]
